FAERS Safety Report 21273555 (Version 1)
Quarter: 2022Q3

REPORT INFORMATION
  Report Type: Spontaneous
  Country: US (occurrence: None)
  Receive Date: 20220830
  Receipt Date: 20220830
  Transmission Date: 20221027
  Serious: Yes (Other)
  Sender: FDA-Public Use
  Company Number: None

PATIENT
  Age: 70 Year
  Sex: Male
  Weight: 80.1 kg

DRUGS (12)
  1. PAXLOVID [Suspect]
     Active Substance: NIRMATRELVIR\RITONAVIR
     Indication: COVID-19
     Dosage: FREQUENCY : TWICE A DAY;?
     Route: 048
     Dates: start: 20220829
  2. DICLOFENAC [Concomitant]
     Active Substance: DICLOFENAC
     Dates: start: 20200101, end: 20220829
  3. SIMVASTATIN [Concomitant]
     Active Substance: SIMVASTATIN
     Dates: start: 20200101, end: 20220829
  4. BUSPAR [Concomitant]
     Active Substance: BUSPIRONE HYDROCHLORIDE
     Dates: start: 20200101, end: 20220829
  5. MULTI-VITAMIN [Concomitant]
     Active Substance: .ALPHA.-TOCOPHEROL ACETATE, DL-\ASCORBIC ACID\CYANOCOBALAMIN\FLUORIDE ION\FOLIC ACID\NIACIN\PYRIDOXI
     Dates: start: 20210101, end: 20220829
  6. VITAMIN C [Concomitant]
     Active Substance: ASCORBIC ACID
     Dates: start: 20210101, end: 20220829
  7. Omega 369 (fish oils) [Concomitant]
     Dates: start: 20200101, end: 20220829
  8. IRON [Concomitant]
     Active Substance: IRON
     Dates: start: 20220501, end: 20220829
  9. VITAMIN B12 [Concomitant]
     Active Substance: CYANOCOBALAMIN
     Dates: start: 20200101, end: 20220829
  10. ASIAN GINSENG [Concomitant]
     Active Substance: ASIAN GINSENG
     Dates: start: 20200101, end: 20220829
  11. SEROTONIN [Concomitant]
     Active Substance: SEROTONIN
     Dates: start: 20220301, end: 20220829
  12. SILDENAFIL [Concomitant]
     Active Substance: SILDENAFIL
     Dates: start: 20200101, end: 20220701

REACTIONS (1)
  - Taste disorder [None]

NARRATIVE: CASE EVENT DATE: 20220829
